FAERS Safety Report 8841426 (Version 2)
Quarter: 2012Q4

REPORT INFORMATION
  Report Type: 
  Country: US (occurrence: US)
  Receive Date: 20121015
  Receipt Date: 20121017
  Transmission Date: 20130627
  Serious: Yes (Death)
  Sender: FDA-Public Use
  Company Number: US-ASTELLAS-2012US010065

PATIENT
  Age: 69 Year
  Sex: Male

DRUGS (2)
  1. PROGRAF [Suspect]
     Indication: ACUTE MYOCARDIAL INFARCTION
     Dosage: 1.5 mg, bid
     Route: 048
     Dates: start: 20120309, end: 20120922
  2. PROGRAF [Suspect]
     Indication: STEM CELL TRANSPLANT
     Dosage: 3 mg, bid
     Route: 048
     Dates: start: 20120312, end: 201207

REACTIONS (4)
  - Off label use [Unknown]
  - Sepsis [Fatal]
  - Acute myeloid leukaemia [Fatal]
  - Chronic myeloid leukaemia [Fatal]
